FAERS Safety Report 18325175 (Version 1)
Quarter: 2020Q3

REPORT INFORMATION
  Report Type: Spontaneous
  Country: DE (occurrence: DE)
  Receive Date: 20200929
  Receipt Date: 20200929
  Transmission Date: 20201103
  Serious: Yes (Hospitalization, Other)
  Sender: FDA-Public Use
  Company Number: DE-009507513-2009DEU008147

PATIENT
  Age: 37 Year
  Sex: Female

DRUGS (4)
  1. GONADOTROPIN, CHORIONIC [Suspect]
     Active Substance: CHORIOGONADOTROPIN ALFA
     Indication: OVULATION INDUCTION
     Dosage: UNK
     Dates: start: 20200517, end: 20200517
  2. OVITRELLE [Suspect]
     Active Substance: CHORIOGONADOTROPIN ALFA
     Indication: OVULATION INDUCTION
     Dosage: UNK
     Dates: start: 20200517, end: 20200517
  3. PERGOVERIS [Suspect]
     Active Substance: FOLLITROPIN\LUTROPIN ALFA
     Indication: ASSISTED REPRODUCTIVE TECHNOLOGY
     Dosage: 150 INTERNATIONAL UNIT, QD
     Dates: start: 20200507, end: 20200516
  4. CETROTIDE [Suspect]
     Active Substance: CETRORELIX ACETATE
     Indication: ASSISTED REPRODUCTIVE TECHNOLOGY
     Dosage: DOSE: 0.25 MILLIGRAM (MG), QD
     Dates: start: 20200511, end: 20200516

REACTIONS (1)
  - Assisted reproductive technology [Recovered/Resolved]

NARRATIVE: CASE EVENT DATE: 20200526
